FAERS Safety Report 6212251-4 (Version None)
Quarter: 2009Q2

REPORT INFORMATION
  Report Type: 
  Country: None (occurrence: None)
  Receive Date: 20090602
  Receipt Date: 20090526
  Transmission Date: 20091009
  Serious: Yes (Hospitalization, Other)
  Sender: FDA-Public Use
  Company Number: DE-ABBOTT-08P-062-0491903-00

PATIENT
  Sex: Female

DRUGS (4)
  1. HUMIRA [Suspect]
     Indication: CROHN'S DISEASE
     Route: 058
     Dates: start: 20080201
  2. AZULFIDINE EN-TABS [Concomitant]
     Indication: DRUG USE FOR UNKNOWN INDICATION
  3. NOVALGIN [Concomitant]
     Indication: PAIN
     Dosage: 20 DROPS DAILY AS NEEDED
     Route: 048
     Dates: start: 20070101
  4. PREDNISOLONE [Concomitant]
     Indication: CROHN'S DISEASE
     Dates: start: 20080101

REACTIONS (2)
  - INCISIONAL HERNIA [None]
  - INTESTINAL STENOSIS [None]
